FAERS Safety Report 22914766 (Version 7)
Quarter: 2024Q1

REPORT INFORMATION
  Report Type: Spontaneous
  Country: JP (occurrence: JP)
  Receive Date: 20230907
  Receipt Date: 20240129
  Transmission Date: 20240409
  Serious: Yes (Death, Life-Threatening, Hospitalization, Other)
  Sender: FDA-Public Use
  Company Number: JP-MSD-2308JPN003968J

PATIENT
  Age: 79 Year
  Sex: Male
  Weight: 41 kg

DRUGS (16)
  1. LAGEVRIO [Suspect]
     Active Substance: MOLNUPIRAVIR
     Indication: COVID-19 treatment
     Dosage: 1600 MILLIGRAM/DAY
     Route: 048
     Dates: start: 20220206, end: 20220210
  2. PIPERACILLIN SODIUM\TAZOBACTAM SODIUM [Suspect]
     Active Substance: PIPERACILLIN SODIUM\TAZOBACTAM SODIUM
     Indication: Pneumonia aspiration
     Dosage: 13.5G/DAY
     Route: 065
     Dates: start: 202202, end: 202202
  3. PIPERACILLIN SODIUM\TAZOBACTAM SODIUM [Suspect]
     Active Substance: PIPERACILLIN SODIUM\TAZOBACTAM SODIUM
     Dosage: 13.5G/DAY
     Route: 065
     Dates: start: 202202, end: 202202
  4. ARIPIPRAZOLE [Concomitant]
     Active Substance: ARIPIPRAZOLE
     Dosage: 1.5 MILLIGRAM/DAY
     Route: 048
     Dates: start: 20211231, end: 20220222
  5. SUVOREXANT [Concomitant]
     Active Substance: SUVOREXANT
     Dosage: 15 MILLIGRAM/DAY
     Route: 048
     Dates: start: 20201221, end: 20220222
  6. VALPROATE SODIUM [Concomitant]
     Active Substance: VALPROATE SODIUM
     Dosage: 400 MILLIGRAM/DAY
     Route: 048
     Dates: start: 20201221, end: 20220216
  7. ENALAPRIL MALEATE [Concomitant]
     Active Substance: ENALAPRIL MALEATE
     Dosage: 2.5 MILLIGRAM/DAY
     Route: 048
     Dates: start: 20211224, end: 20220222
  8. ELOBIXIBAT [Concomitant]
     Active Substance: ELOBIXIBAT
     Dosage: 10 MILLIGRAM/DAY
     Route: 048
     Dates: start: 20220128, end: 20220217
  9. QUETIAPINE FUMARATE [Concomitant]
     Active Substance: QUETIAPINE FUMARATE
     Dosage: 12.5 MILLIGRAM/DAY
     Route: 048
     Dates: start: 20201217
  10. QUETIAPINE FUMARATE [Concomitant]
     Active Substance: QUETIAPINE FUMARATE
     Dosage: 25 MILLIGRAM/DAY
     Route: 048
     Dates: end: 20220216
  11. CARBOCYSTEINE [Concomitant]
     Active Substance: CARBOCYSTEINE
     Dosage: 1500 MILLIGRAM/DAY
     Route: 048
     Dates: start: 20211217, end: 20220222
  12. LANSOPRAZOLE [Concomitant]
     Active Substance: LANSOPRAZOLE
     Dosage: 15 MILLIGRAM/DAY
     Route: 048
     Dates: start: 20201222, end: 20220216
  13. ISOSORBIDE DINITRATE [Concomitant]
     Active Substance: ISOSORBIDE DINITRATE
     Dosage: 40 MILLIGRAM/DAY
     Route: 065
     Dates: end: 20220213
  14. ACETYLCYSTEINE;ALANINE;ARGININE;ASPARTIC ACID;CALCIUM CHLORIDE;GLUCOSE [Concomitant]
     Dosage: 1000 MILLILITER/DAY
     Route: 065
  15. ACETYLCYSTEINE;ALANINE;ARGININE;ASPARTIC ACID;CALCIUM CHLORIDE;GLUCOSE [Concomitant]
     Dosage: 1000 MILLILITER/DAY
     Route: 065
     Dates: start: 2022, end: 202202
  16. RINGERS SOLUTION [Concomitant]
     Active Substance: CALCIUM CHLORIDE\POTASSIUM CHLORIDE\SODIUM CHLORIDE
     Dosage: 500 MILLILITER/DAY
     Route: 065
     Dates: start: 202202, end: 202202

REACTIONS (1)
  - Thrombocytopenia [Fatal]

NARRATIVE: CASE EVENT DATE: 20220208
